FAERS Safety Report 4548486-6 (Version None)
Quarter: 2005Q1

REPORT INFORMATION
  Report Type: 
  Country: None (occurrence: None)
  Receive Date: 20050106
  Receipt Date: 20041222
  Transmission Date: 20050727
  Serious: Yes (Other)
  Sender: FDA-Public Use
  Company Number: 200414678BCC

PATIENT
  Age: 66 Year
  Sex: Female
  Weight: 80.7403 kg

DRUGS (10)
  1. ALEVE [Suspect]
     Indication: ARTHRITIS
     Dosage: SEE IMAGE
     Route: 048
  2. ALEVE [Suspect]
     Indication: ARTHRITIS
     Dosage: SEE IMAGE
     Route: 048
  3. NORVASC [Concomitant]
  4. HYDROCHLOROTHIAZIDE [Concomitant]
  5. POTASSIUM [Concomitant]
  6. DOXAZOSIN [Concomitant]
  7. CLONIDINE HCL [Concomitant]
  8. EFFEXOR XR [Concomitant]
  9. NEXIUM [Concomitant]
  10. VITAMINS (NOS) [Concomitant]

REACTIONS (8)
  - BARRETT'S OESOPHAGUS [None]
  - FAECES DISCOLOURED [None]
  - GASTRIC POLYPS [None]
  - GASTRIC ULCER HAEMORRHAGE [None]
  - HAEMATEMESIS [None]
  - MELAENA [None]
  - PEPTIC ULCER [None]
  - PSEUDOPOLYP [None]
